FAERS Safety Report 10057029 (Version 1)
Quarter: 2014Q2

REPORT INFORMATION
  Report Type: Spontaneous
  Country: US (occurrence: US)
  Receive Date: 20140403
  Receipt Date: 20140403
  Transmission Date: 20141212
  Serious: Yes (Other)
  Sender: FDA-Public Use
  Company Number: US-B.I. PHARMACEUTICALS,INC./RIDGEFIELD-2014-BI-14172BP

PATIENT
  Age: 80 Year
  Sex: Female
  Weight: 91 kg

DRUGS (5)
  1. SPIRIVA [Suspect]
     Indication: EMPHYSEMA
     Dosage: 18 MCG
     Route: 055
     Dates: start: 2004
  2. SPIRIVA [Suspect]
     Dosage: 18 MCG
     Route: 048
     Dates: start: 20140330, end: 20140331
  3. ADVAIR [Concomitant]
     Indication: ASTHMA
     Dosage: FORMULATION: INHALATION AEROSOL
     Route: 055
  4. PLAVIX [Concomitant]
     Indication: CAROTID ARTERY THROMBOSIS
     Dosage: 75 MG
     Route: 048
  5. IRON [Concomitant]
     Indication: ANAEMIA
     Route: 048

REACTIONS (7)
  - Peripheral arterial occlusive disease [Not Recovered/Not Resolved]
  - Muscle spasms [Not Recovered/Not Resolved]
  - Cellulitis [Not Recovered/Not Resolved]
  - Peripheral arterial occlusive disease [Not Recovered/Not Resolved]
  - Haemorrhage [Recovered/Resolved]
  - Cough [Not Recovered/Not Resolved]
  - Incorrect route of drug administration [Recovered/Resolved]
